FAERS Safety Report 6108450-2 (Version None)
Quarter: 2009Q1

REPORT INFORMATION
  Report Type: 
  Country: None (occurrence: None)
  Receive Date: 20090309
  Receipt Date: 20090227
  Transmission Date: 20090719
  Serious: Yes (Hospitalization)
  Sender: FDA-Public Use
  Company Number: DE-B.I. PHARMACEUTICALS,INC./RIDGEFIELD-2009-DE-01924DE

PATIENT
  Age: 78 Year
  Sex: Male
  Weight: 79 kg

DRUGS (9)
  1. SPIRIVA [Suspect]
     Indication: CHRONIC OBSTRUCTIVE PULMONARY DISEASE
     Dosage: 18MCG
     Route: 048
  2. ATARAX [Suspect]
     Indication: PRURITUS
     Dosage: 25MG
     Route: 048
     Dates: end: 20081115
  3. VIANI FORTE [Suspect]
     Indication: CHRONIC OBSTRUCTIVE PULMONARY DISEASE
     Dosage: 100MCG
     Route: 048
  4. ALLOPURINOL [Concomitant]
     Indication: HYPERURICAEMIA
     Dosage: 300MG
     Route: 048
  5. ACETYLSALICYLIC ACID SRT [Concomitant]
     Indication: PROPHYLAXIS
     Dosage: 100MG
     Route: 048
  6. BISOHEXAL 10 [Concomitant]
     Indication: HYPERTENSION
     Dosage: 5MG
     Route: 048
  7. CEFTRIAXONE [Concomitant]
     Indication: PNEUMONIA
     Dosage: 2G
     Route: 042
     Dates: start: 20081112, end: 20081114
  8. INEGY 10/20 [Concomitant]
     Indication: HYPERCHOLESTEROLAEMIA
     Dosage: 10MG
     Route: 048
  9. ISCOVER [Concomitant]
     Indication: PROPHYLAXIS
     Dosage: 75MG
     Route: 048
     Dates: end: 20081115

REACTIONS (1)
  - ATRIAL FIBRILLATION [None]
